FAERS Safety Report 16407746 (Version 7)
Quarter: 2019Q3

REPORT INFORMATION
  Report Type: Spontaneous
  Country: PL (occurrence: PL)
  Receive Date: 20190609
  Receipt Date: 20190820
  Transmission Date: 20191004
  Serious: Yes (Other)
  Sender: FDA-Public Use
  Company Number: PL-CELLTRION INC.-2019PL021745

PATIENT

DRUGS (13)
  1. VINCRISTINE [Suspect]
     Active Substance: VINCRISTINE
     Indication: CHRONIC LYMPHOCYTIC LEUKAEMIA
     Dosage: UNK UNK, CYCLIC (R-CHOP, 3 CYCLES)
     Route: 065
     Dates: start: 201803, end: 201806
  2. RITUXIMAB (UNKNOWN) [Suspect]
     Active Substance: RITUXIMAB
     Indication: CHRONIC LYMPHOCYTIC LEUKAEMIA
     Dosage: UNK UNK, CYCLIC (R-CHOP, 3 CYCLES)
     Route: 065
     Dates: start: 201803, end: 201806
  3. ENDOXAN [CYCLOPHOSPHAMIDE MONOHYDRATE] [Suspect]
     Active Substance: CYCLOPHOSPHAMIDE
     Dosage: R-FC CHEMOTHERAPY
     Route: 065
     Dates: start: 201301
  4. BENDAMUSTINE HYDROCHLORIDE. [Suspect]
     Active Substance: BENDAMUSTINE HYDROCHLORIDE
     Dosage: MONOTHERAPY
     Route: 042
     Dates: start: 201705, end: 201710
  5. RITUXIMAB (UNKNOWN) [Suspect]
     Active Substance: RITUXIMAB
     Dosage: UNK
     Route: 065
  6. PREDNISONE. [Suspect]
     Active Substance: PREDNISONE
     Indication: CHRONIC LYMPHOCYTIC LEUKAEMIA
     Dosage: UNK UNK, CYCLIC (R-CHOP, 3 CYCLES)
     Route: 065
     Dates: start: 201803, end: 201806
  7. ENDOXAN [CYCLOPHOSPHAMIDE MONOHYDRATE] [Suspect]
     Active Substance: CYCLOPHOSPHAMIDE
     Indication: CHRONIC LYMPHOCYTIC LEUKAEMIA
     Dosage: UNK UNK, CYCLIC (R-CHOP, 3 CYCLES)
     Route: 065
     Dates: start: 201803, end: 201806
  8. RITUXIMAB (UNKNOWN) [Suspect]
     Active Substance: RITUXIMAB
     Dosage: WITH BENDAMUSTINE
     Route: 065
     Dates: start: 201511
  9. BENDAMUSTINE HYDROCHLORIDE. [Suspect]
     Active Substance: BENDAMUSTINE HYDROCHLORIDE
     Indication: CHRONIC LYMPHOCYTIC LEUKAEMIA
     Dosage: UNK
     Route: 065
  10. RITUXIMAB (UNKNOWN) [Suspect]
     Active Substance: RITUXIMAB
     Dosage: R-FC CHEMOTHERAPY
     Route: 065
     Dates: start: 201301
  11. ENDOXAN [CYCLOPHOSPHAMIDE MONOHYDRATE] [Suspect]
     Active Substance: CYCLOPHOSPHAMIDE
     Dosage: FC CHEMOTHERAPY
     Route: 065
     Dates: start: 201201
  12. BENDAMUSTINE HYDROCHLORIDE. [Suspect]
     Active Substance: BENDAMUSTINE HYDROCHLORIDE
     Dosage: WITH RITUXIMAB
     Route: 042
     Dates: start: 201511
  13. DOXORUBICIN [Suspect]
     Active Substance: DOXORUBICIN
     Indication: CHRONIC LYMPHOCYTIC LEUKAEMIA
     Dosage: UNK UNK, CYCLIC (R-CHOP, 3 CYCLES)
     Route: 065
     Dates: start: 201803, end: 201806

REACTIONS (12)
  - Leukaemia cutis [Unknown]
  - Chronic lymphocytic leukaemia [Unknown]
  - Drug resistance [Unknown]
  - Drug ineffective [Unknown]
  - Pruritus [Unknown]
  - Skin lesion [Unknown]
  - Erythema [Unknown]
  - Product use in unapproved indication [Unknown]
  - Therapy partial responder [Unknown]
  - Skin erosion [Unknown]
  - Nodule [Unknown]
  - Rash papular [Unknown]

NARRATIVE: CASE EVENT DATE: 201704
